FAERS Safety Report 13046051 (Version 1)
Quarter: 2016Q4

REPORT INFORMATION
  Report Type: Spontaneous
  Country: US (occurrence: US)
  Receive Date: 20161220
  Receipt Date: 20161220
  Transmission Date: 20170207
  Serious: No
  Sender: FDA-Public Use
  Company Number: US-DRREDDYS-USA/USA/16/0081416

PATIENT
  Sex: Male
  Weight: 89.3 kg

DRUGS (1)
  1. OLANZAPINE FILM-COATED TABLET 20 MG [Suspect]
     Active Substance: OLANZAPINE
     Indication: SLEEP DISORDER
     Route: 048

REACTIONS (2)
  - Product quality issue [Unknown]
  - Drug ineffective [Unknown]
